FAERS Safety Report 8601031 (Version 4)
Quarter: 2012Q4

REPORT INFORMATION
  Report Type: 
  Country: US (occurrence: US)
  Receive Date: 20120606
  Receipt Date: 20121116
  Transmission Date: 20130627
  Serious: Yes (Hospitalization)
  Sender: FDA-Public Use
  Company Number: US-BAYER-2012-055452

PATIENT
  Age: 20 Year
  Sex: Female
  Weight: 54.42 kg

DRUGS (6)
  1. YAZ [Suspect]
     Indication: DYSMENORRHEA
     Dosage: UNK
     Dates: start: 20091117, end: 201105
  2. YAZ [Suspect]
     Indication: CRAMP ABDOMINAL
  3. YAZ [Suspect]
     Indication: IRREGULAR PERIODS
  4. LEXAPRO [Concomitant]
     Indication: ANXIETY
     Dosage: 10 mg, daily
     Dates: start: 20110505, end: 20110614
  5. LEXAPRO [Concomitant]
     Indication: ANXIETY
     Dosage: UNK
     Dates: start: 20110721
  6. MUPIROCIN [Concomitant]
     Dosage: 2 %, twice daily
     Dates: start: 20110511

REACTIONS (11)
  - Pulmonary embolism [None]
  - Chest pain [None]
  - Dyspnoea [None]
  - Fatigue [None]
  - Injury [None]
  - General physical health deterioration [None]
  - Emotional distress [None]
  - Pain [None]
  - Anxiety [None]
  - Anhedonia [None]
  - Off label use [None]
